FAERS Safety Report 8354504-X (Version None)
Quarter: 2012Q2

REPORT INFORMATION
  Report Type: 
  Country: None (occurrence: None)
  Receive Date: 20120511
  Receipt Date: 20120502
  Transmission Date: 20120825
  Serious: Yes (Hospitalization, Other)
  Sender: FDA-Public Use
  Company Number: GR-AMGEN-GRCSP2012028599

PATIENT
  Age: 56 Year
  Sex: Female

DRUGS (8)
  1. ENBREL [Suspect]
     Dosage: 50 MG, WEEKLY
     Route: 058
     Dates: start: 20111201
  2. METHOTREXATE [Concomitant]
     Indication: RHEUMATOID ARTHRITIS
     Dosage: UNK
     Route: 048
  3. T4 [Concomitant]
     Indication: THYROID DISORDER
     Dosage: UNK
     Route: 048
  4. LEXOTANIL [Concomitant]
     Indication: DEPRESSION
     Dosage: UNK
     Route: 048
  5. CALCIUM [Concomitant]
     Dosage: UNK
     Route: 048
  6. ENBREL [Suspect]
     Indication: RHEUMATOID ARTHRITIS
     Dosage: 1 DOSE
     Dates: start: 20120401, end: 20120401
  7. CYMBALTA [Concomitant]
     Indication: DEPRESSION
     Dosage: UNK
     Route: 048
  8. FILICINE [Concomitant]
     Dosage: UNK
     Route: 048

REACTIONS (4)
  - HERNIA [None]
  - IMPAIRED HEALING [None]
  - SUBILEUS [None]
  - COMA [None]
